FAERS Safety Report 4985751-2 (Version None)
Quarter: 2006Q2

REPORT INFORMATION
  Report Type: 
  Country: None (occurrence: None)
  Receive Date: 20060428
  Receipt Date: 20060424
  Transmission Date: 20061013
  Serious: Yes (Hospitalization)
  Sender: FDA-Public Use
  Company Number: PHEH2006US05308

PATIENT
  Age: 54 Year
  Sex: Female

DRUGS (3)
  1. EFFEXOR [Concomitant]
  2. KLONOPIN [Concomitant]
  3. TEGRETOL [Suspect]
     Indication: TRIGEMINAL NEURALGIA
     Dosage: 200 MG, TID
     Dates: start: 20060101, end: 20060201

REACTIONS (3)
  - CARDIAC FAILURE [None]
  - MYOCARDITIS [None]
  - STEVENS-JOHNSON SYNDROME [None]
